FAERS Safety Report 25126589 (Version 1)
Quarter: 2025Q1

REPORT INFORMATION
  Report Type: Spontaneous
  Country: US (occurrence: US)
  Receive Date: 20250327
  Receipt Date: 20250327
  Transmission Date: 20250409
  Serious: No
  Sender: SANDOZ
  Company Number: US-SANDOZ-SDZ2025US018780

PATIENT
  Age: 51 Year
  Sex: Female
  Weight: 102.04 kg

DRUGS (1)
  1. COMBIPATCH [Suspect]
     Active Substance: ESTRADIOL\NORETHINDRONE ACETATE
     Indication: Menopause
     Route: 062
     Dates: start: 2023

REACTIONS (5)
  - Dermal absorption impaired [Not Recovered/Not Resolved]
  - Product adhesion issue [Recovered/Resolved]
  - Therapeutic product ineffective [Recovered/Resolved]
  - Device breakage [Recovered/Resolved]
  - Product administration error [Recovered/Resolved]

NARRATIVE: CASE EVENT DATE: 20250201
